FAERS Safety Report 13986295 (Version 1)
Quarter: 2017Q3

REPORT INFORMATION
  Report Type: Spontaneous
  Country: NL (occurrence: NL)
  Receive Date: 20170919
  Receipt Date: 20170919
  Transmission Date: 20171128
  Serious: Yes (Other)
  Sender: FDA-Public Use
  Company Number: NL-AUROBINDO-AUR-APL-2017-38595

PATIENT
  Age: 71 Year
  Sex: Male

DRUGS (2)
  1. BUPIVACAINE. [Suspect]
     Active Substance: BUPIVACAINE
     Indication: STERNAL FRACTURE
     Route: 008
  2. LIDOCAINE. [Suspect]
     Active Substance: LIDOCAINE
     Indication: STERNAL FRACTURE
     Route: 008

REACTIONS (2)
  - Depressed level of consciousness [Recovered/Resolved]
  - Methaemoglobinaemia [Recovered/Resolved]
